FAERS Safety Report 16724787 (Version 1)
Quarter: 2019Q3

REPORT INFORMATION
  Report Type: Spontaneous
  Country: US (occurrence: US)
  Receive Date: 20190821
  Receipt Date: 20190821
  Transmission Date: 20191005
  Serious: Yes (Other)
  Sender: FDA-Public Use
  Company Number: US-NOVOPROD-659126

PATIENT
  Age: 73 Year
  Sex: Male

DRUGS (2)
  1. GLIPIZIDE. [Concomitant]
     Active Substance: GLIPIZIDE
     Indication: DIABETES MELLITUS
     Dosage: UNK
  2. OZEMPIC [Suspect]
     Active Substance: SEMAGLUTIDE
     Indication: DIABETES MELLITUS
     Dosage: 0.25 MG
     Route: 058
     Dates: start: 20190326, end: 2019

REACTIONS (6)
  - Product storage error [Recovered/Resolved]
  - Device difficult to use [Unknown]
  - Intentional dose omission [Unknown]
  - Condition aggravated [Unknown]
  - Colitis ischaemic [Unknown]
  - Fear of injection [Unknown]

NARRATIVE: CASE EVENT DATE: 2019
